FAERS Safety Report 9769089 (Version 1)
Quarter: 2013Q4

REPORT INFORMATION
  Report Type: Spontaneous
  Country: GB (occurrence: None)
  Receive Date: 20131216
  Receipt Date: 20131216
  Transmission Date: 20140711
  Serious: Yes (Hospitalization)
  Sender: FDA-Public Use
  Company Number: AUR-APL-2013-10308

PATIENT
  Sex: Male

DRUGS (1)
  1. LEVETIRACETAM [Suspect]
     Indication: EPILEPSY

REACTIONS (4)
  - Convulsion [None]
  - Anxiety [None]
  - Product substitution issue [None]
  - Therapeutic response unexpected with drug substitution [None]
